FAERS Safety Report 8631132 (Version 3)
Quarter: 2012Q4

REPORT INFORMATION
  Report Type: 
  Country: US (occurrence: US)
  Receive Date: 20120622
  Receipt Date: 20121003
  Transmission Date: 20130627
  Serious: Yes (Hospitalization)
  Sender: FDA-Public Use
  Company Number: US-ACTELION-A-NJ2012-66817

PATIENT
  Age: 23 Month
  Sex: Female
  Weight: 10 kg

DRUGS (3)
  1. TRACLEER [Suspect]
     Indication: PULMONARY ARTERIAL HYPERTENSION
     Dosage: 15 mg, bid
     Route: 048
     Dates: start: 2012, end: 20120605
  2. TRACLEER [Suspect]
     Dosage: 15 mg, qd
     Route: 048
     Dates: start: 20120607, end: 2012
  3. REVATIO [Concomitant]

REACTIONS (10)
  - Cognitive disorder [Recovered/Resolved]
  - Drooling [Recovered/Resolved]
  - Foaming at mouth [Recovered/Resolved]
  - Tongue disorder [Recovered/Resolved]
  - Eye movement disorder [Recovered/Resolved]
  - Salivary hypersecretion [Recovered/Resolved]
  - Retching [Recovered/Resolved]
  - Developmental delay [Recovered/Resolved]
  - Ocular hyperaemia [Recovered/Resolved]
  - Sluggishness [Recovered/Resolved]
